FAERS Safety Report 24330095 (Version 3)
Quarter: 2025Q3

REPORT INFORMATION
  Report Type: Report from Study
  Country: US (occurrence: US)
  Receive Date: 20240917
  Receipt Date: 20250809
  Transmission Date: 20251020
  Serious: Yes (Other)
  Sender: ALEXION PHARMACEUTICALS
  Company Number: 2024A209828

PATIENT
  Sex: Male

DRUGS (17)
  1. TAGRISSO [Suspect]
     Active Substance: OSIMERTINIB
     Indication: Lung carcinoma cell type unspecified stage 0
     Dosage: 80 MILLIGRAM, QD
     Dates: start: 202408
  2. FARXIGA [Suspect]
     Active Substance: DAPAGLIFLOZIN PROPANEDIOL
  3. OMEPRAZOLE [Suspect]
     Active Substance: OMEPRAZOLE
  4. LATANOPROST [Concomitant]
     Active Substance: LATANOPROST
  5. CLINDAMYCIN [Concomitant]
     Active Substance: CLINDAMYCIN
  6. ACETAMINOPHEN [Concomitant]
     Active Substance: ACETAMINOPHEN
  7. BREO ELLIPTA [Concomitant]
     Active Substance: FLUTICASONE FUROATE\VILANTEROL TRIFENATATE
  8. MECLIZINE [Concomitant]
     Active Substance: MECLIZINE HYDROCHLORIDE
  9. METFORMIN [Concomitant]
     Active Substance: METFORMIN HYDROCHLORIDE
  10. MIRALAX [Concomitant]
     Active Substance: POLYETHYLENE GLYCOL 3350
  11. MUPIROCIN [Concomitant]
     Active Substance: MUPIROCIN
  12. PRAVASTATIN [Concomitant]
     Active Substance: PRAVASTATIN
  13. STOOL SOFTENER (DOCUSATE) [Concomitant]
     Active Substance: DOCUSATE
  14. TAMSULOSIN HYDROCHLORIDE [Concomitant]
     Active Substance: TAMSULOSIN HYDROCHLORIDE
  15. TERBINAFINE [Concomitant]
     Active Substance: TERBINAFINE
  16. VENLAFAXINE [Concomitant]
     Active Substance: VENLAFAXINE HYDROCHLORIDE
  17. VITAMIN D [Concomitant]
     Active Substance: VITAMIN D NOS

REACTIONS (3)
  - Hernia [Unknown]
  - Fatigue [Not Recovered/Not Resolved]
  - Dyspnoea [Not Recovered/Not Resolved]
